FAERS Safety Report 21088335 (Version 1)
Quarter: 2022Q3

REPORT INFORMATION
  Report Type: Spontaneous
  Country: US (occurrence: US)
  Receive Date: 20220715
  Receipt Date: 20220715
  Transmission Date: 20221027
  Serious: Yes (Other)
  Sender: FDA-Public Use
  Company Number: US-FreseniusKabi-FK202209790

PATIENT

DRUGS (3)
  1. HEPARIN SODIUM [Suspect]
     Active Substance: HEPARIN SODIUM
     Indication: Product used for unknown indication
     Dosage: HEPARIN 3000 UNITS IV ADMINISTERED AT 1051
     Route: 042
  2. HEPARIN SODIUM [Suspect]
     Active Substance: HEPARIN SODIUM
     Dosage: HEPARIN 5000 UNITS IV ADMINISTERED AT 1056
     Route: 042
  3. BRILINTA [Concomitant]
     Active Substance: TICAGRELOR
     Indication: Product used for unknown indication
     Dosage: 1059 BRILINTA 180 MG PO ADMINISTERED
     Route: 048

REACTIONS (5)
  - Vascular stent thrombosis [Unknown]
  - Chest pain [Unknown]
  - Cardiac arrest [Unknown]
  - Pulseless electrical activity [Unknown]
  - Drug ineffective [Unknown]
